FAERS Safety Report 7248944-X (Version None)
Quarter: 2011Q1

REPORT INFORMATION
  Report Type: 
  Country: None (occurrence: None)
  Receive Date: 20110128
  Receipt Date: 20100901
  Transmission Date: 20110831
  Serious: Yes (Hospitalization, Other)
  Sender: FDA-Public Use
  Company Number: US-BAYER-201018503NA

PATIENT
  Sex: Female
  Weight: 60.909 kg

DRUGS (16)
  1. AMBIEN [Concomitant]
  2. YASMIN [Suspect]
     Indication: CONTRACEPTION
  3. YASMIN [Suspect]
     Indication: ACNE
  4. IBUPROFEN [Concomitant]
  5. CYCLOBENZAPRINE [Concomitant]
  6. CITALOPRAM [Concomitant]
  7. YASMIN [Suspect]
     Indication: MENSTRUAL CYCLE MANAGEMENT
     Route: 048
     Dates: start: 20040104, end: 20090601
  8. SOTRET [Concomitant]
  9. NYSTATIN [Concomitant]
  10. UNCODEABLE ^UNCLASSIFIABLE^ [Concomitant]
  11. LUSTRA [Concomitant]
  12. DIFFERIN [Concomitant]
  13. SPIRONOLACTONE [Concomitant]
  14. UNCODEABLE ^UNCLASSIFIABLE^ [Concomitant]
     Indication: PRODUCT USED FOR UNKNOWN INDICATION
  15. DOXYCYCLINE [Concomitant]
  16. NAPROXEN [Concomitant]

REACTIONS (2)
  - THROMBOSIS [None]
  - DEEP VEIN THROMBOSIS [None]
